FAERS Safety Report 6501368-2 (Version None)
Quarter: 2009Q4

REPORT INFORMATION
  Report Type: 
  Country: None (occurrence: None)
  Receive Date: 20091127
  Receipt Date: 20090311
  Transmission Date: 20100525
  Serious: Yes (Other)
  Sender: FDA-Public Use
  Company Number: WAES 0706USA00843

PATIENT
  Age: 53 Year
  Sex: Female

DRUGS (14)
  1. FOSAMAX [Suspect]
     Indication: OSTEOPENIA
     Dosage: 70 MG/PO
     Route: 048
     Dates: start: 20040110, end: 20041014
  2. ACIPHEX [Concomitant]
  3. CELLCEPT [Concomitant]
  4. LIPITOR [Concomitant]
  5. VIOXX [Concomitant]
  6. ALBUTEROL [Concomitant]
  7. ALLOPURINOL [Concomitant]
  8. DICYCLOMINE HYDROCHLORIDE [Concomitant]
  9. LISINOPRIL [Concomitant]
  10. METOCLOPRAMIDE [Concomitant]
  11. METOPROLOL [Concomitant]
  12. MORPHINE [Concomitant]
  13. PREDNISONE [Concomitant]
  14. PROMETHAZINE [Concomitant]

REACTIONS (8)
  - ABSCESS [None]
  - DENTAL CARIES [None]
  - GINGIVAL DISORDER [None]
  - ORAL PAIN [None]
  - OSTEONECROSIS [None]
  - ROAD TRAFFIC ACCIDENT [None]
  - SWELLING [None]
  - TOOTH LOSS [None]
